FAERS Safety Report 25948038 (Version 1)
Quarter: 2025Q4

REPORT INFORMATION
  Report Type: Spontaneous
  Country: EU (occurrence: EU)
  Receive Date: 20251022
  Receipt Date: 20251022
  Transmission Date: 20260117
  Serious: Yes (Death, Hospitalization, Other)
  Sender: TEVA
  Company Number: None

PATIENT
  Age: 63 Year
  Sex: Male

DRUGS (3)
  1. MYCOPHENOLATE MOFETIL [Suspect]
     Active Substance: MYCOPHENOLATE MOFETIL
     Indication: Immunosuppressant drug therapy
     Dosage: UNKNOWN DOSAGE. DOSE WAS SLIGHTLY REDUCED IN THE DAYS FOLLOWING THE CARDIAC TRANSPLANT DUE TO ELE...
     Route: 065
     Dates: start: 20200323, end: 20200526
  2. PREDNISOLONE [Suspect]
     Active Substance: PREDNISOLONE
     Indication: Immunosuppressant drug therapy
     Dosage: UNKNOWN DOSAGE. DOSE WAS SLIGHTLY REDUCED IN THE DAYS FOLLOWING THE CARDIAC TRANSPLANT DUE TO ELE...
     Route: 065
     Dates: start: 20200323
  3. TACROLIMUS [Suspect]
     Active Substance: TACROLIMUS
     Indication: Immunosuppressant drug therapy
     Dosage: UNKNOWN DOSAGE. DOSAGE WAS INCREASED ON 13 MAY 2020 DUE TO SIGNS OF SLIGHT REJECTION OF THE HEART...
     Route: 065
     Dates: start: 20200421

REACTIONS (5)
  - Pulmonary mucormycosis [Fatal]
  - Painful respiration [Unknown]
  - Dyspnoea [Unknown]
  - Pyrexia [Not Recovered/Not Resolved]
  - Malaise [Not Recovered/Not Resolved]

NARRATIVE: CASE EVENT DATE: 20200101
